FAERS Safety Report 20955578 (Version 3)
Quarter: 2022Q2

REPORT INFORMATION
  Report Type: Spontaneous
  Country: US (occurrence: US)
  Receive Date: 20220614
  Receipt Date: 20220628
  Transmission Date: 20220721
  Serious: No
  Sender: FDA-Public Use
  Company Number: US-GLAXOSMITHKLINE-US2022AMR092340

PATIENT
  Sex: Female

DRUGS (1)
  1. ZEJULA [Suspect]
     Active Substance: NIRAPARIB
     Indication: Ovarian cancer
     Dosage: 300 MG, QD
     Dates: end: 20220613

REACTIONS (6)
  - Platelet count decreased [Not Recovered/Not Resolved]
  - White blood cell count decreased [Unknown]
  - Red blood cell count decreased [Unknown]
  - Fatigue [Unknown]
  - Heart rate increased [Unknown]
  - Constipation [Unknown]
